FAERS Safety Report 9526384 (Version 2)
Quarter: 2013Q3

REPORT INFORMATION
  Report Type: Spontaneous
  Country: GT (occurrence: GT)
  Receive Date: 20130916
  Receipt Date: 20130930
  Transmission Date: 20140515
  Serious: Yes (Death)
  Sender: FDA-Public Use
  Company Number: GT-ELI_LILLY_AND_COMPANY-GT201309003565

PATIENT
  Age: 65 Year
  Sex: Female

DRUGS (2)
  1. HUMALOG 25% LISPRO, 75% NPL [Suspect]
     Indication: DIABETES MELLITUS
     Dosage: UNK
     Dates: start: 2010, end: 201304
  2. PANTOPRAZOLE [Concomitant]
     Dosage: 40 MG, PRN
     Dates: start: 2010

REACTIONS (4)
  - Hepatic neoplasm [Fatal]
  - Osteoarthritis [Unknown]
  - Decreased appetite [Unknown]
  - Hypoglycaemia [Unknown]
